FAERS Safety Report 24061926 (Version 1)
Quarter: 2024Q3

REPORT INFORMATION
  Report Type: Spontaneous
  Country: US (occurrence: US)
  Receive Date: 20240708
  Receipt Date: 20240708
  Transmission Date: 20241016
  Serious: Yes (Other)
  Sender: ORGANON
  Company Number: US-PFIZER INC-202400199833

PATIENT
  Sex: Male

DRUGS (4)
  1. ZOCOR [Suspect]
     Active Substance: SIMVASTATIN
     Indication: Hyperlipidaemia
     Dosage: 1 DOSAGE FORM, QD (10MG TABLET, ONE TABLET BY MOUTH DAILY)
     Route: 048
     Dates: start: 202406
  2. PAXLOVID [Suspect]
     Active Substance: NIRMATRELVIR\RITONAVIR
     Indication: Coronavirus test positive
     Dosage: 300/100, TABLET 2 300 NITR 1 RITI TWICE DAILY FOR 5 DAYS BY  MOUTH
     Route: 048
     Dates: start: 20240619
  3. AMLODIPINE [Concomitant]
     Active Substance: AMLODIPINE BESYLATE
     Indication: Hypertensive heart disease
     Dosage: 1 DOSAGE FORM, QD (10MG BY MOUTH ONCE A DAY)
     Route: 048
  4. LOSARTAN POTASSIUM [Concomitant]
     Active Substance: LOSARTAN POTASSIUM
     Indication: Hypertensive heart disease
     Dosage: 100 MILLIGRAM, QD (100MG TABLET BY MOUTH DAILY)
     Route: 048

REACTIONS (1)
  - Contraindicated product administered [Unknown]

NARRATIVE: CASE EVENT DATE: 20240601
